FAERS Safety Report 13182120 (Version 2)
Quarter: 2017Q1

REPORT INFORMATION
  Report Type: Spontaneous
  Country: KR (occurrence: KR)
  Receive Date: 20170202
  Receipt Date: 20170303
  Transmission Date: 20170428
  Serious: Yes (Hospitalization, Other)
  Sender: FDA-Public Use
  Company Number: KR-009507513-1701KOR010137

PATIENT
  Age: 48 Year
  Sex: Male
  Weight: 62 kg

DRUGS (12)
  1. CISPLAN [Concomitant]
     Active Substance: CISPLATIN
     Indication: CHEMOTHERAPY
     Dosage: STRENGTH 50MG/100ML; 100 MG, QD; CYCLE 2
     Route: 042
     Dates: start: 20161208, end: 20161208
  2. EMEND (FOSAPREPITANT DIMEGLUMINE) [Suspect]
     Active Substance: FOSAPREPITANT DIMEGLUMINE
     Indication: PROPHYLAXIS OF NAUSEA AND VOMITING
     Dosage: 150 MG, ONCE
     Route: 042
     Dates: start: 20161116, end: 20161116
  3. MAINTA [Concomitant]
     Indication: CHEMOTHERAPY
     Dosage: 880 MG, ONCE; CYCLE 2
     Route: 042
     Dates: start: 20161208, end: 20161208
  4. EMEND (FOSAPREPITANT DIMEGLUMINE) [Suspect]
     Active Substance: FOSAPREPITANT DIMEGLUMINE
     Dosage: 150 MG, ONCE
     Route: 042
     Dates: start: 20170102, end: 20170102
  5. EMEND (FOSAPREPITANT DIMEGLUMINE) [Suspect]
     Active Substance: FOSAPREPITANT DIMEGLUMINE
     Dosage: 150 MG, ONCE
     Route: 042
     Dates: start: 20170124, end: 20170124
  6. XARELTO [Concomitant]
     Active Substance: RIVAROXABAN
     Indication: TUMOUR THROMBOSIS
     Dosage: 1 TABLET (15 MG), BID
     Route: 048
     Dates: start: 20161116, end: 20161207
  7. EMEND (FOSAPREPITANT DIMEGLUMINE) [Suspect]
     Active Substance: FOSAPREPITANT DIMEGLUMINE
     Dosage: 150 MG, ONCE
     Route: 042
     Dates: start: 20161208, end: 20161208
  8. DEXAMETHASONE SODIUM PHOSPHATE. [Concomitant]
     Active Substance: DEXAMETHASONE SODIUM PHOSPHATE
     Indication: PROPHYLAXIS OF NAUSEA AND VOMITING
     Dosage: 12 MG, QD; STRENGTH: 5MG/ML
     Route: 042
     Dates: start: 20161208, end: 20161209
  9. ALOXI [Concomitant]
     Active Substance: PALONOSETRON HYDROCHLORIDE
     Indication: PROPHYLAXIS OF NAUSEA AND VOMITING
     Dosage: 1.5 ML, QD
     Route: 042
     Dates: start: 20161208, end: 20161208
  10. DIABEX [Concomitant]
     Active Substance: METFORMIN HYDROCHLORIDE
     Indication: DIABETES MELLITUS
     Dosage: 1 TABLET (500 MG), QD
     Route: 048
     Dates: start: 201611
  11. DEXAMETHASONE. [Concomitant]
     Active Substance: DEXAMETHASONE
     Indication: PROPHYLAXIS OF NAUSEA AND VOMITING
     Dosage: 16 TABLETS, QD
     Route: 048
     Dates: start: 20161209, end: 20161211
  12. LASIX [Concomitant]
     Active Substance: FUROSEMIDE
     Indication: PROPHYLAXIS
     Dosage: STRENGTH 20MG/2ML, 20 MG, ONCE
     Route: 042
     Dates: start: 20161208, end: 20161208

REACTIONS (4)
  - Malignant pleural effusion [Recovered/Resolved]
  - Dyspnoea [Recovered/Resolved]
  - Rash papular [Recovered/Resolved]
  - Epigastric discomfort [Recovered/Resolved]

NARRATIVE: CASE EVENT DATE: 20161212
